FAERS Safety Report 21985918 (Version 1)
Quarter: 2023Q1

REPORT INFORMATION
  Report Type: Spontaneous
  Country: US (occurrence: None)
  Receive Date: 20230211
  Receipt Date: 20230211
  Transmission Date: 20230417
  Serious: Yes (unspecified)
  Sender: FDA-Public Use
  Company Number: None

PATIENT
  Age: 79 Year
  Sex: Female
  Weight: 72 kg

DRUGS (10)
  1. JARDIANCE [Suspect]
     Active Substance: EMPAGLIFLOZIN
     Indication: Cardiac failure
  2. SYNTHROID [Concomitant]
     Active Substance: LEVOTHYROXINE SODIUM
  3. SOTALOL [Concomitant]
     Active Substance: SOTALOL
  4. COREG [Concomitant]
     Active Substance: CARVEDILOL
  5. ENTRESTO [Concomitant]
     Active Substance: SACUBITRIL\VALSARTAN
  6. COUMADIN [Concomitant]
     Active Substance: WARFARIN SODIUM
  7. COLACE [Concomitant]
     Active Substance: DOCUSATE SODIUM
  8. IRON [Concomitant]
     Active Substance: IRON
  9. VITAMIN D NOS [Concomitant]
     Active Substance: VITAMIN D NOS
  10. POTASSIUM [Concomitant]
     Active Substance: POTASSIUM

REACTIONS (5)
  - Vaginal cellulitis [None]
  - Vaginal haemorrhage [None]
  - Fungal infection [None]
  - Myalgia [None]
  - Hypoaesthesia [None]

NARRATIVE: CASE EVENT DATE: 20230112
